FAERS Safety Report 9394584 (Version 5)
Quarter: 2014Q2

REPORT INFORMATION
  Report Type: Spontaneous
  Country: US (occurrence: US)
  Receive Date: 20130711
  Receipt Date: 20140530
  Transmission Date: 20141212
  Serious: No
  Sender: FDA-Public Use
  Company Number: US-PFIZER INC-2013203001

PATIENT
  Age: 62 Year
  Sex: Female
  Weight: 77 kg

DRUGS (4)
  1. LYRICA [Suspect]
     Indication: FIBROMYALGIA
     Dosage: 150 MG, 3X/DAY
     Route: 048
     Dates: end: 20140411
  2. LYRICA [Suspect]
     Dosage: 300 MG, 2X/DAY (2 ORAL CAPSULES OF 150MG IN THE MORNING AND 2 ORAL CAPSULES OF 150MG AT NIGHT)
     Route: 048
     Dates: start: 20140411, end: 201405
  3. LORAZEPAM [Concomitant]
     Dosage: UNK
  4. ZOLPIDEM [Concomitant]
     Dosage: UNK, ONCE A DAY AT NIGHT

REACTIONS (9)
  - Withdrawal syndrome [Unknown]
  - Malaise [Unknown]
  - Fibromyalgia [Unknown]
  - Headache [Unknown]
  - Diarrhoea [Unknown]
  - Nervousness [Unknown]
  - Activities of daily living impaired [Not Recovered/Not Resolved]
  - Neuralgia [Not Recovered/Not Resolved]
  - Drug effect incomplete [Unknown]
